FAERS Safety Report 5146695-9 (Version None)
Quarter: 2006Q4

REPORT INFORMATION
  Report Type: 
  Country: None (occurrence: None)
  Receive Date: 20061109
  Receipt Date: 20060728
  Transmission Date: 20070319
  Serious: Yes (Life-Threatening, Hospitalization)
  Sender: FDA-Public Use
  Company Number: AU-ROCHE-457567

PATIENT
  Age: 57 Year
  Sex: Male
  Weight: 60 kg

DRUGS (4)
  1. PEGASYS [Suspect]
     Route: 058
     Dates: start: 20060515, end: 20060724
  2. COVERSYL PLUS [Concomitant]
     Route: 048
  3. DIABEX [Concomitant]
     Route: 048
  4. RIBAVIRIN [Concomitant]
     Route: 048
     Dates: start: 20060515, end: 20060724

REACTIONS (2)
  - CEREBRAL HAEMORRHAGE [None]
  - HAEMORRHAGIC STROKE [None]
